FAERS Safety Report 13553758 (Version 1)
Quarter: 2017Q2

REPORT INFORMATION
  Report Type: Spontaneous
  Country: EG (occurrence: EG)
  Receive Date: 20170517
  Receipt Date: 20170517
  Transmission Date: 20170830
  Serious: Yes (Death)
  Sender: FDA-Public Use
  Company Number: EG-SA-2017SA089052

PATIENT
  Age: 5 Year
  Sex: Female
  Weight: 11 kg

DRUGS (1)
  1. CEREZYME [Suspect]
     Active Substance: IMIGLUCERASE
     Indication: GAUCHER^S DISEASE TYPE III
     Dosage: DOSE: 60
     Route: 042
     Dates: start: 20160908, end: 20161215

REACTIONS (3)
  - Lower respiratory tract infection [Fatal]
  - Pneumonia [Fatal]
  - Respiratory failure [Fatal]
